FAERS Safety Report 9804262 (Version 2)
Quarter: 2014Q1

REPORT INFORMATION
  Report Type: Spontaneous
  Country: US (occurrence: US)
  Receive Date: 20140108
  Receipt Date: 20140108
  Transmission Date: 20141002
  Serious: Yes (Hospitalization, Other)
  Sender: FDA-Public Use
  Company Number: US-UCBSA-052341

PATIENT
  Sex: Female
  Weight: 77.1 kg

DRUGS (11)
  1. ATORVASTATIN CALCIUM [Suspect]
     Indication: BLOOD CHOLESTEROL INCREASED
  2. XYREM [Suspect]
     Indication: NARCOLEPSY
     Dosage: 500MG/ML TWICE NIGHTLY
     Route: 048
     Dates: start: 20020927
  3. XYREM [Suspect]
     Indication: CATAPLEXY
     Dosage: 500MG/ML TWICE NIGHTLY
     Route: 048
     Dates: start: 20020927
  4. LOSARTAN [Concomitant]
     Indication: HYPERTENSION
     Dosage: 100 MG
  5. BUMETANIDE [Concomitant]
     Indication: OEDEMA
     Dosage: 1 MG
  6. WARFARIN [Concomitant]
     Dosage: 2 MG
  7. MODAFINIL [Concomitant]
     Indication: NARCOLEPSY
     Dosage: 200 MG
  8. HYDROXYZINE [Concomitant]
     Indication: PRURITUS
     Dosage: DAILY DOSE:20 MG
  9. HYDROXYZINE [Concomitant]
     Indication: RASH
     Dosage: DAILY DOSE:20 MG
  10. CLARITIN [Concomitant]
  11. METOPROLOL [Concomitant]

REACTIONS (4)
  - Osteoarthritis [Recovered/Resolved]
  - Neurodermatitis [Not Recovered/Not Resolved]
  - Cough [Recovering/Resolving]
  - Weight decreased [Not Recovered/Not Resolved]
